FAERS Safety Report 15788244 (Version 1)
Quarter: 2019Q1

REPORT INFORMATION
  Report Type: Spontaneous
  Country: AU (occurrence: AU)
  Receive Date: 20190104
  Receipt Date: 20190104
  Transmission Date: 20190417
  Serious: Yes (Other)
  Sender: FDA-Public Use
  Company Number: AU-009507513-1901AUS000043

PATIENT
  Age: 27 Year
  Sex: Male

DRUGS (4)
  1. IVOMEC [Suspect]
     Active Substance: IVERMECTIN
     Indication: STRONGYLOIDIASIS
     Dosage: 12 MILLIGRAM, QD
     Route: 058
  2. IVOMEC [Suspect]
     Active Substance: IVERMECTIN
     Dosage: ON DAYS 5, 6, 10, 11, AND 12 24 MILLIGRAM, QD
     Route: 058
  3. IVERMECTIN. [Suspect]
     Active Substance: IVERMECTIN
     Indication: STRONGYLOIDIASIS
     Dosage: 12 MILLIGRAM (ALSO REPORTED AS 200 MICROGRAM/KG), QD
  4. ALBENDAZOLE. [Concomitant]
     Active Substance: ALBENDAZOLE
     Indication: STRONGYLOIDIASIS
     Dosage: 800 MILLIGRAM, QD

REACTIONS (3)
  - Cholestasis [Unknown]
  - Muscle atrophy [Unknown]
  - Myopathy [Unknown]
